FAERS Safety Report 4602299-5 (Version None)
Quarter: 2005Q2

REPORT INFORMATION
  Report Type: 
  Country: None (occurrence: None)
  Receive Date: 20050215
  Receipt Date: 20041101
  Transmission Date: 20051028
  Serious: Yes (Other)
  Sender: FDA-Public Use
  Company Number: 380387

PATIENT
  Age: 50 Year
  Sex: Male

DRUGS (2)
  1. PEGASYS [Suspect]
     Dosage: OTHER
     Dates: start: 20040826
  2. COPEGUS [Suspect]
     Dosage: ORAL
     Route: 048
     Dates: start: 20040826

REACTIONS (11)
  - BACK PAIN [None]
  - BLOOD GLUCOSE INCREASED [None]
  - CHILLS [None]
  - FAECES DISCOLOURED [None]
  - INFLUENZA LIKE ILLNESS [None]
  - MONOCYTE COUNT INCREASED [None]
  - NEUTROPHIL COUNT ABNORMAL [None]
  - PLATELET COUNT ABNORMAL [None]
  - RED BLOOD CELL COUNT ABNORMAL [None]
  - SERUM FERRITIN INCREASED [None]
  - WHITE BLOOD CELL DISORDER [None]
